FAERS Safety Report 9769456 (Version 2)
Quarter: 2014Q1

REPORT INFORMATION
  Report Type: Spontaneous
  Country: DE (occurrence: DE)
  Receive Date: 20131218
  Receipt Date: 20140320
  Transmission Date: 20141002
  Serious: Yes (Other)
  Sender: FDA-Public Use
  Company Number: DE-ASTELLAS-2013EU011171

PATIENT
  Age: 48 Year
  Sex: Female

DRUGS (6)
  1. PROGRAF [Suspect]
     Dosage: 6 MG, BID
     Route: 065
     Dates: start: 20100706
  2. PROGRAF [Suspect]
     Dosage: UNK
     Route: 065
  3. PREDNISOLONE [Suspect]
     Indication: IMMUNOSUPPRESSION
     Dosage: UNK
     Route: 065
  4. PREDNISOLONE [Suspect]
     Indication: PANCREAS TRANSPLANT
  5. MYCOPHENOLIC ACID [Suspect]
     Indication: IMMUNOSUPPRESSION
     Dosage: UNK
     Route: 065
  6. MYCOPHENOLIC ACID [Suspect]
     Indication: PANCREAS TRANSPLANT

REACTIONS (3)
  - Off label use [Unknown]
  - Pancreatitis acute [Recovered/Resolved]
  - Complications of transplanted pancreas [Recovered/Resolved]
